FAERS Safety Report 5544035-4 (Version None)
Quarter: 2007Q4

REPORT INFORMATION
  Report Type: 
  Country: None (occurrence: None)
  Receive Date: 20071210
  Receipt Date: 20070108
  Transmission Date: 20080405
  Serious: No
  Sender: FDA-Public Use
  Company Number: US-AMGEN-KDL187843

PATIENT
  Sex: Female

DRUGS (17)
  1. ENBREL [Suspect]
     Indication: RHEUMATOID ARTHRITIS
     Route: 058
     Dates: start: 20060619
  2. METHOTREXATE [Concomitant]
     Route: 048
     Dates: start: 20010101
  3. CELEBREX [Concomitant]
  4. PREVACID [Concomitant]
  5. PAXIL [Concomitant]
  6. CARDIZEM CD [Concomitant]
  7. ALLEGRA [Concomitant]
  8. FOLIC ACID [Concomitant]
  9. CALCIUM [Concomitant]
  10. POTASSIUM CHLORIDE [Concomitant]
  11. VITAMIN CAP [Concomitant]
  12. TYLENOL [Concomitant]
  13. ZOMIG [Concomitant]
  14. PREMPRO (WYETH-AYERST) [Concomitant]
  15. SINGULAIR [Concomitant]
  16. CYCLOBENZAPRINE HCL [Concomitant]
  17. IMITREX [Concomitant]

REACTIONS (6)
  - ABDOMINAL DISTENSION [None]
  - FIBROMYALGIA [None]
  - HYPERHIDROSIS [None]
  - INJECTION SITE BRUISING [None]
  - INJECTION SITE REACTION [None]
  - NAUSEA [None]
